FAERS Safety Report 5169390-9 (Version None)
Quarter: 2006Q4

REPORT INFORMATION
  Report Type: 
  Country: None (occurrence: None)
  Receive Date: 20061211
  Receipt Date: 20061206
  Transmission Date: 20070319
  Serious: Yes (Other)
  Sender: FDA-Public Use
  Company Number: US-BRISTOL-MYERS SQUIBB COMPANY-13603543

PATIENT
  Sex: Female

DRUGS (1)
  1. DEFINITY [Suspect]
     Indication: ECHOCARDIOGRAM
     Route: 042
     Dates: start: 20060101

REACTIONS (3)
  - ANAPHYLACTIC REACTION [None]
  - CHEST PAIN [None]
  - DYSPNOEA [None]
